FAERS Safety Report 25034492 (Version 1)
Quarter: 2025Q1

REPORT INFORMATION
  Report Type: Spontaneous
  Country: JP (occurrence: JP)
  Receive Date: 20250304
  Receipt Date: 20250304
  Transmission Date: 20250409
  Serious: Yes (Other)
  Sender: Haleon PLC
  Company Number: JP-002147023-NVSJ2024JP014444

PATIENT
  Age: 75 Year
  Sex: Female

DRUGS (1)
  1. DICLOFENAC [Suspect]
     Active Substance: DICLOFENAC
     Indication: Rheumatoid arthritis
     Dosage: THERAPY DURATION: MORE THAN 30 YEARS, THERAPY DATES: UNKNOWN
     Route: 048

REACTIONS (6)
  - Gastroduodenal ulcer [Unknown]
  - Duodenal stenosis [Unknown]
  - Abdominal pain upper [Unknown]
  - Chronic gastritis [Unknown]
  - Helicobacter infection [Recovering/Resolving]
  - Gastrointestinal disorder [Unknown]
